FAERS Safety Report 13982098 (Version 7)
Quarter: 2018Q1

REPORT INFORMATION
  Report Type: Report from Study
  Country: JP (occurrence: JP)
  Receive Date: 20170918
  Receipt Date: 20180117
  Transmission Date: 20180508
  Serious: Yes (Hospitalization)
  Sender: FDA-Public Use
  Company Number: JP-ROCHE-1992191

PATIENT
  Age: 76 Year
  Sex: Male
  Weight: 39.9 kg

DRUGS (13)
  1. ATEZOLIZUMAB. [Suspect]
     Active Substance: ATEZOLIZUMAB
     Indication: NON-SMALL CELL LUNG CANCER STAGE IV
     Dosage: DATE OF MOST RECENT DOSE OF ATEZOLIZUMAB PRIOR TO SAE RENAL DYSFUNCTION WAS ON 21/AUG/2017 AT 11: 50
     Route: 042
     Dates: start: 20170501
  2. SHIN LULU A GOLD DX (ACETAMINOPHEN\BELLADONNA\BENFOTIAMINE\BROMHEXINE\CAFFEINE\CLEMASTINE\DIHYDROCODEINE\METHYLEPHEDRINE\NOSCAPINE\TRANEXAMIC ACID) [Suspect]
     Active Substance: ACETAMINOPHEN\BELLADONNA\BENFOTIAMINE\BROMHEXINE\CAFFEINE\CLEMASTINE\DIHYDROCODEINE\METHYLEPHEDRINE\NOSCAPINE\TRANEXAMIC ACID
     Indication: NASOPHARYNGITIS
     Route: 065
     Dates: start: 20170830, end: 20170910
  3. ROSUVASTATIN CALCIUM. [Concomitant]
     Active Substance: ROSUVASTATIN CALCIUM
     Indication: HYPERLIPIDAEMIA
  4. CELECOXIB. [Concomitant]
     Active Substance: CELECOXIB
     Indication: INGUINAL HERNIA
     Route: 065
     Dates: start: 20170608
  5. ESOMEPRAZOLE MAGNESIUM. [Concomitant]
     Active Substance: ESOMEPRAZOLE MAGNESIUM
     Indication: GASTRIC ULCER
     Dosage: HYDRATE
     Route: 065
  6. ACETAMINOPHEN. [Concomitant]
     Active Substance: ACETAMINOPHEN
     Indication: HEADACHE
     Route: 065
     Dates: start: 20170422
  7. NIFEDIPINE. [Concomitant]
     Active Substance: NIFEDIPINE
     Indication: HYPERTENSION
     Route: 065
     Dates: start: 20170429
  8. ALFACALCIDOL [Concomitant]
     Active Substance: ALFACALCIDOL
     Indication: METASTASES TO BONE
     Route: 065
     Dates: start: 20170821
  9. METHYL SALICYLATE [Concomitant]
     Active Substance: METHYL SALICYLATE
     Indication: TUMOUR PAIN
     Route: 065
     Dates: start: 20170811
  10. VALSARTAN. [Concomitant]
     Active Substance: VALSARTAN
     Indication: HYPERTENSION
     Route: 065
     Dates: start: 20170429
  11. ZOLEDRONIC ACID [Concomitant]
     Active Substance: ZOLEDRONIC ACID
     Indication: METASTASES TO BONE
     Dosage: HYDRATE
     Route: 065
     Dates: start: 20170420
  12. TIOTROPIUM BROMIDE [Concomitant]
     Active Substance: TIOTROPIUM BROMIDE
     Indication: CHRONIC OBSTRUCTIVE PULMONARY DISEASE
     Dosage: HYDRATE
     Route: 065
     Dates: start: 20170421
  13. ATEZOLIZUMAB. [Suspect]
     Active Substance: ATEZOLIZUMAB
     Dosage: RESTARTED?DATE OF MOST RECENT DOSE OF ATEZOLIZUMAB PRIOR TO SAE CREATININE INCREASED WAS ON 30/OCT/2
     Route: 042
     Dates: start: 20171030

REACTIONS (9)
  - Bacillus test positive [None]
  - Dehydration [None]
  - Nasopharyngitis [None]
  - Renal impairment [Recovered/Resolved]
  - Bacterial test positive [None]
  - Escherichia test positive [None]
  - Fungal test positive [None]
  - Infection [None]
  - Blood creatinine increased [Recovered/Resolved]

NARRATIVE: CASE EVENT DATE: 20170911
